FAERS Safety Report 18468341 (Version 3)
Quarter: 2021Q4

REPORT INFORMATION
  Report Type: Report from Study
  Country: None (occurrence: US)
  Receive Date: 20201105
  Receipt Date: 20211022
  Transmission Date: 20220303
  Serious: Yes (Hospitalization, Other)
  Sender: FDA-Public Use
  Company Number: US-ABBVIE-20K-163-3261957-00

PATIENT
  Age: 65 Year
  Sex: Female
  Weight: 69.46 kg

DRUGS (9)
  1. HUMIRA [Suspect]
     Active Substance: ADALIMUMAB
     Indication: Rheumatoid arthritis
     Dosage: CITRATE FREE
     Route: 058
     Dates: start: 20191221
  2. HUMIRA [Suspect]
     Active Substance: ADALIMUMAB
     Indication: Spinal osteoarthritis
     Dosage: CITRATE FREE
     Route: 058
     Dates: start: 202109
  3. HUMIRA [Suspect]
     Active Substance: ADALIMUMAB
     Dosage: CITRATE FREE
     Route: 058
  4. HUMIRA [Suspect]
     Active Substance: ADALIMUMAB
     Dosage: CITRATE FREE
     Route: 058
  5. FLOVENT [Concomitant]
     Active Substance: FLUTICASONE PROPIONATE
     Indication: Sarcoidosis
  6. ALBUTEROL SULFATE [Concomitant]
     Active Substance: ALBUTEROL SULFATE
     Indication: Sarcoidosis
     Dosage: INHALERS
  7. PROLIA [Concomitant]
     Active Substance: DENOSUMAB
     Indication: Osteoporosis
  8. ALBUTEROL [Concomitant]
     Active Substance: ALBUTEROL
     Indication: Sarcoidosis
  9. MODERNA COVID-19 VACCINE [Concomitant]
     Active Substance: CX-024414
     Indication: COVID-19 immunisation
     Route: 030

REACTIONS (22)
  - Influenza [Recovered/Resolved]
  - Adverse drug reaction [Unknown]
  - Decreased appetite [Recovered/Resolved]
  - Decreased appetite [Unknown]
  - Sitting disability [Unknown]
  - Joint range of motion decreased [Unknown]
  - Loss of consciousness [Recovered/Resolved]
  - Thyroid disorder [Unknown]
  - Osteoporosis [Unknown]
  - Off label use [Not Recovered/Not Resolved]
  - Concussion [Not Recovered/Not Resolved]
  - Needle issue [Unknown]
  - Hypoacusis [Unknown]
  - Sleep disorder [Not Recovered/Not Resolved]
  - Contusion [Not Recovered/Not Resolved]
  - Fracture [Unknown]
  - Fall [Recovered/Resolved]
  - Arthropathy [Unknown]
  - Pain [Unknown]
  - Pulmonary sarcoidosis [Recovering/Resolving]
  - Muscle spasms [Unknown]
  - Device issue [Unknown]

NARRATIVE: CASE EVENT DATE: 20191221
